FAERS Safety Report 25446787 (Version 3)
Quarter: 2025Q3

REPORT INFORMATION
  Report Type: Spontaneous
  Country: BR (occurrence: BR)
  Receive Date: 20250617
  Receipt Date: 20250811
  Transmission Date: 20251020
  Serious: Yes (Hospitalization, Other)
  Sender: SANDOZ
  Company Number: BR-002147023-NVSC2025BR095674

PATIENT
  Sex: Female
  Weight: 118 kg

DRUGS (11)
  1. AMITRIPTYLINE HYDROCHLORIDE [Suspect]
     Active Substance: AMITRIPTYLINE HYDROCHLORIDE
     Indication: Product used for unknown indication
     Route: 065
  2. DIPYRONE [Suspect]
     Active Substance: DIPYRONE
     Indication: Pain
     Dosage: 1 G, QID (FOUR TIMES A DAY) EVERY 6 HOURS
     Route: 065
  3. FULVESTRANT [Suspect]
     Active Substance: FULVESTRANT
     Indication: Product used for unknown indication
     Dosage: UNK, QMO (INJECTABLE)
     Route: 065
  4. KISQALI [Suspect]
     Active Substance: RIBOCICLIB SUCCINATE
     Indication: Breast cancer
     Dosage: 3 DOSAGE FORM, QD (21 DAYS, PAUSE 7  DAYS)
     Route: 065
     Dates: start: 202501
  5. METHADONE [Suspect]
     Active Substance: METHADONE HYDROCHLORIDE
     Indication: Product used for unknown indication
     Route: 065
  6. MORPHINE [Suspect]
     Active Substance: MORPHINE
     Indication: Product used for unknown indication
     Route: 065
  7. ZOLEDRONIC ACID [Suspect]
     Active Substance: ZOLEDRONIC ACID
     Indication: Bone disorder
     Dosage: UNK, Q3MO (OTHER)
     Route: 065
  8. AMITRIPTYLINE [Concomitant]
     Active Substance: AMITRIPTYLINE
     Indication: Migraine
     Dosage: 2 DOSAGE FORM, QD (25MG TWO TABLETS AT  NIGHT)
     Route: 065
  9. DIPYRONE [Concomitant]
     Active Substance: DIPYRONE
     Indication: Pain
     Dosage: 1 G, Q8H
     Route: 065
  10. METHADONE [Concomitant]
     Active Substance: METHADONE HYDROCHLORIDE
     Indication: Pain
     Route: 065
  11. MORPHINE [Concomitant]
     Active Substance: MORPHINE
     Indication: Product used for unknown indication
     Route: 065

REACTIONS (18)
  - Metastases to bone [Unknown]
  - Tumour pain [Unknown]
  - Cardiac fibrillation [Recovered/Resolved]
  - Arrhythmia supraventricular [Unknown]
  - Arrhythmia [Recovered/Resolved]
  - Heart rate abnormal [Recovered/Resolved]
  - Discomfort [Unknown]
  - Blood pressure abnormal [Recovered/Resolved]
  - Abdominal discomfort [Unknown]
  - Hypertension [Recovered/Resolved]
  - Hypotension [Unknown]
  - Dyspnoea [Recovered/Resolved]
  - Malaise [Recovered/Resolved]
  - Chest pain [Recovered/Resolved]
  - Malaise [Not Recovered/Not Resolved]
  - Nausea [Recovering/Resolving]
  - Headache [Unknown]
  - Vomiting [Recovering/Resolving]

NARRATIVE: CASE EVENT DATE: 20250101
